FAERS Safety Report 4846146-5 (Version None)
Quarter: 2005Q4

REPORT INFORMATION
  Report Type: 
  Country: None (occurrence: None)
  Receive Date: 20051206
  Receipt Date: 20051007
  Transmission Date: 20060501
  Serious: Yes (Death, Other)
  Sender: FDA-Public Use
  Company Number: 2005AP05350

PATIENT
  Age: 27423 Day
  Sex: Male
  Weight: 59 kg

DRUGS (15)
  1. IRESSA [Suspect]
     Indication: NON-SMALL CELL LUNG CANCER
     Route: 048
     Dates: start: 20050831, end: 20051007
  2. IRESSA [Suspect]
     Indication: LUNG ADENOCARCINOMA
     Route: 048
     Dates: start: 20050831, end: 20051007
  3. RINDERON [Concomitant]
     Indication: BRAIN OEDEMA
     Route: 048
     Dates: end: 20051007
  4. TAKEPRON [Concomitant]
     Indication: GASTRITIS
     Route: 048
     Dates: end: 20051007
  5. CYANOCOBALAMIN [Concomitant]
     Indication: NEUROPATHY PERIPHERAL
     Route: 048
     Dates: end: 20051007
  6. LENDORMIN [Concomitant]
     Indication: INSOMNIA
     Route: 048
     Dates: end: 20051007
  7. ADALAT [Concomitant]
     Indication: HYPERTENSION
     Route: 048
     Dates: end: 20051007
  8. LOXONIN [Concomitant]
     Indication: PAIN
     Route: 048
     Dates: end: 20051007
  9. SELBEX [Concomitant]
     Indication: GASTRITIS
     Route: 048
     Dates: end: 20051007
  10. CARBOPLATIN [Concomitant]
     Dosage: 3 CYCLES
     Dates: start: 20050125, end: 20050328
  11. CARBOPLATIN [Concomitant]
     Dates: start: 20050427, end: 20050427
  12. TAXOTERE [Concomitant]
     Dosage: 3 CYCLES
     Dates: start: 20050125, end: 20050328
  13. TAXOTERE [Concomitant]
     Dates: start: 20050427, end: 20050427
  14. GEMCITABINE [Concomitant]
     Dosage: 2 CYCLES
     Dates: start: 20050713, end: 20050816
  15. RADIATION THERAPY [Concomitant]
     Dosage: 36 GY TO WHOLE BRAIN
     Dates: start: 20050721, end: 20050805

REACTIONS (9)
  - ACUTE RESPIRATORY DISTRESS SYNDROME [None]
  - ANOREXIA [None]
  - DISSEMINATED INTRAVASCULAR COAGULATION [None]
  - ECZEMA [None]
  - INTERSTITIAL LUNG DISEASE [None]
  - LEUKOPENIA [None]
  - MULTI-ORGAN FAILURE [None]
  - RASH [None]
  - SEPSIS [None]
